FAERS Safety Report 5030683-7 (Version None)
Quarter: 2006Q2

REPORT INFORMATION
  Report Type: 
  Country: None (occurrence: None)
  Receive Date: 20060615
  Receipt Date: 20060607
  Transmission Date: 20061013
  Serious: Yes (Other)
  Sender: FDA-Public Use
  Company Number: 2006067961

PATIENT
  Age: 76 Year
  Sex: Female

DRUGS (1)
  1. NORVASC [Suspect]
     Indication: ILL-DEFINED DISORDER
     Dosage: ORAL
     Route: 048

REACTIONS (2)
  - CONJUNCTIVAL HAEMORRHAGE [None]
  - SCLERAL HAEMORRHAGE [None]
